FAERS Safety Report 20069047 (Version 3)
Quarter: 2022Q1

REPORT INFORMATION
  Report Type: Spontaneous
  Country: JP (occurrence: JP)
  Receive Date: 20211115
  Receipt Date: 20220128
  Transmission Date: 20220423
  Serious: Yes (Hospitalization, Other)
  Sender: FDA-Public Use
  Company Number: JP-OTSUKA-2021_007690

PATIENT
  Age: 7 Decade
  Sex: Female

DRUGS (9)
  1. ABILIFY [Suspect]
     Active Substance: ARIPIPRAZOLE
     Indication: Schizophrenia
     Dosage: 400MG/SHOT, EVERY 28 DAYS, ADMINISTERED ONLY ONCE
     Route: 030
     Dates: start: 20210121, end: 20210121
  2. ABILIFY [Suspect]
     Active Substance: ARIPIPRAZOLE
     Indication: Schizophrenia
     Dosage: 24MG/DAY, FREQUENCY UNKNOWN
     Route: 048
  3. REXULTI [Suspect]
     Active Substance: BREXPIPRAZOLE
     Indication: Schizophrenia
     Dosage: UNK
     Route: 048
  4. ABILIFY [Suspect]
     Active Substance: ARIPIPRAZOLE
     Indication: Schizophrenia
     Dosage: 300MG/SHOT/28 DAYS, ADMINISTERED ONLY ONCE
     Route: 030
     Dates: start: 20210218, end: 20210218
  5. ABILIFY [Suspect]
     Active Substance: ARIPIPRAZOLE
     Dosage: 300MG/SHOT/28 DAYS, ADMINISTERED ONLY ONCE
     Route: 030
     Dates: start: 20210712, end: 20210712
  6. ABILIFY [Suspect]
     Active Substance: ARIPIPRAZOLE
     Dosage: 300MG/SHOT/28 DAYS, ADMINISTERED ONLY ONCE
     Route: 030
     Dates: start: 20210809, end: 20210809
  7. ABILIFY [Suspect]
     Active Substance: ARIPIPRAZOLE
     Dosage: 300MG/SHOT/28 DAYS, ADMINISTERED ONLY ONCE
     Route: 030
     Dates: start: 20210906, end: 20210906
  8. RIVOTRIL [Concomitant]
     Active Substance: CLONAZEPAM
     Indication: Product used for unknown indication
     Dosage: 1 MG, QD
     Route: 048
  9. AMLODIPINE BESYLATE [Concomitant]
     Active Substance: AMLODIPINE BESYLATE
     Indication: Product used for unknown indication
     Dosage: 2.5 MG, QD
     Route: 048

REACTIONS (7)
  - Psychiatric symptom [Unknown]
  - Parkinsonism [Recovering/Resolving]
  - Logorrhoea [Unknown]
  - Anger [Unknown]
  - Salivary hypersecretion [Recovering/Resolving]
  - Salivary hypersecretion [Recovering/Resolving]
  - Salivary hypersecretion [Recovered/Resolved]

NARRATIVE: CASE EVENT DATE: 20210301
